FAERS Safety Report 4483070-4 (Version None)
Quarter: 2004Q3

REPORT INFORMATION
  Report Type: 
  Country: None (occurrence: None)
  Receive Date: 20040921
  Receipt Date: 20040512
  Transmission Date: 20050211
  Serious: Yes (Hospitalization)
  Sender: FDA-Public Use
  Company Number: 163-20875-04050313 (0)

PATIENT
  Age: 53 Year
  Sex: Male

DRUGS (4)
  1. THALOMID [Suspect]
     Indication: MULTIPLE MYELOMA
     Dosage: 200 MG, QD, ORAL
     Route: 048
     Dates: start: 20030712, end: 20040306
  2. AREDIA [Suspect]
     Indication: MULTIPLE MYELOMA
     Dosage: 60 MG, INTRAVEVNOUS
     Route: 042
     Dates: start: 29930711
  3. HYDRALAZAINE (HYDRALAZINE) [Concomitant]
  4. METOPROLOL TARTRATE [Concomitant]

REACTIONS (6)
  - CHEST PAIN [None]
  - DYSPNOEA [None]
  - DYSPNOEA EXERTIONAL [None]
  - OEDEMA [None]
  - OEDEMA PERIPHERAL [None]
  - SICK SINUS SYNDROME [None]
